FAERS Safety Report 15880698 (Version 2)
Quarter: 2019Q1

REPORT INFORMATION
  Report Type: Report from Study
  Country: CN (occurrence: CN)
  Receive Date: 20190128
  Receipt Date: 20190129
  Transmission Date: 20190417
  Serious: Yes (Other)
  Sender: FDA-Public Use
  Company Number: CN-PFIZER INC-2019034444

PATIENT
  Age: 2 Year
  Sex: Female

DRUGS (5)
  1. CYCLOPHOSPHAMIDE. [Suspect]
     Active Substance: CYCLOPHOSPHAMIDE
     Indication: MEDULLOBLASTOMA
     Dosage: 800 MG/M2, DAILY (800 MG/M^2/D)
  2. VINCRISTINE [Suspect]
     Active Substance: VINCRISTINE
     Indication: MEDULLOBLASTOMA
     Dosage: 1.5 MG/M2, DAILY (1.5 MG/M^2/D)
  3. CISPLATIN. [Suspect]
     Active Substance: CISPLATIN
     Indication: MEDULLOBLASTOMA
     Dosage: 75 MG/M2, DAILY (75 MG/M^2/D)
  4. CISPLATIN. [Suspect]
     Active Substance: CISPLATIN
     Dosage: 200 MG/M2, DAILY (200 MG/M^ 2/D)
  5. METHOTREXATE. [Suspect]
     Active Substance: METHOTREXATE
     Indication: MEDULLOBLASTOMA
     Dosage: 5000 MG/M2, DAILY (5G/M^2/D)

REACTIONS (2)
  - Second primary malignancy [Unknown]
  - Ganglioneuroma [Unknown]
